FAERS Safety Report 9291405 (Version 1)
Quarter: 2013Q2

REPORT INFORMATION
  Report Type: Spontaneous
  Country: US (occurrence: US)
  Receive Date: 20130515
  Receipt Date: 20130515
  Transmission Date: 20140414
  Serious: No
  Sender: FDA-Public Use
  Company Number: US-BAUSCH-BL-2013-000652

PATIENT
  Age: 70 Year
  Sex: Female

DRUGS (6)
  1. BROMDAY 0.09% [Suspect]
     Indication: CATARACT OPERATION
     Route: 047
     Dates: start: 20120614
  2. BESIVANCE (BESIFLOXACIN OPHTHALMIC SUSPENSION) 0.6% [Concomitant]
     Indication: CATARACT OPERATION
     Route: 047
     Dates: start: 20120614
  3. LOTEMAX (LOTEPREDNOL ETABONATE OPHTHALMIC SUSPENSION 0.5%) [Concomitant]
     Indication: CATARACT OPERATION
     Route: 047
     Dates: start: 20120614
  4. BRINZOLAMIDE [Concomitant]
     Indication: GLAUCOMA
     Route: 047
  5. LEVOTHYROXINE SODIUM [Concomitant]
     Indication: THYROID DISORDER
     Route: 048
  6. ATORVASTATIN CALCIUM [Concomitant]
     Indication: BLOOD CHOLESTEROL INCREASED
     Route: 048

REACTIONS (1)
  - Eye pain [Recovering/Resolving]
